FAERS Safety Report 7347239-3 (Version None)
Quarter: 2011Q1

REPORT INFORMATION
  Report Type: 
  Country: None (occurrence: None)
  Receive Date: 20110311
  Receipt Date: 20110309
  Transmission Date: 20110831
  Serious: Yes (Hospitalization)
  Sender: FDA-Public Use
  Company Number: JP-ABBOTT-10P-087-0672254-00

PATIENT
  Sex: Male
  Weight: 56.7 kg

DRUGS (14)
  1. PREDNISOLONE [Concomitant]
     Route: 048
     Dates: start: 20100922, end: 20100925
  2. SULFAMETHOXAZOLE AND TRIMETHOPRIM [Concomitant]
     Indication: INFECTION PROPHYLAXIS
     Dates: start: 20100701, end: 20100921
  3. VALSARTAN [Concomitant]
     Indication: PRODUCT USED FOR UNKNOWN INDICATION
     Dosage: 160MG DAILY
     Route: 048
     Dates: start: 20100701, end: 20100921
  4. AMLODIPINE BESILATE [Concomitant]
     Indication: PRODUCT USED FOR UNKNOWN INDICATION
     Dates: start: 20100701, end: 20100921
  5. TRICHLORMETHIAZIDE [Concomitant]
     Indication: PRODUCT USED FOR UNKNOWN INDICATION
     Dosage: 0.5 TABLET DAILY
     Dates: start: 20100701, end: 20100921
  6. CELECOXIB [Concomitant]
     Indication: RHEUMATOID ARTHRITIS
     Dates: start: 20100701, end: 20100921
  7. LANSOPRAZOLE [Concomitant]
     Indication: PROPHYLAXIS
     Dates: start: 20100701, end: 20100921
  8. HUMIRA [Suspect]
     Indication: RHEUMATOID ARTHRITIS
     Route: 058
     Dates: start: 20100908, end: 20100908
  9. WARFARIN POTASSIUM [Concomitant]
     Indication: PRODUCT USED FOR UNKNOWN INDICATION
     Dosage: 2 TABLETS DAILY
     Dates: start: 20100701, end: 20100921
  10. DOXAZOSIN MESYLATE [Concomitant]
     Indication: PRODUCT USED FOR UNKNOWN INDICATION
     Dosage: 1 TABLET DAILY
     Dates: start: 20100701, end: 20100921
  11. PREDNISOLONE [Concomitant]
     Indication: RHEUMATOID ARTHRITIS
     Dosage: 2 TABLETS DAILY
     Dates: start: 20100701, end: 20100921
  12. ETIZOLAM [Concomitant]
     Indication: SEDATION
     Dates: start: 20100701, end: 20100921
  13. LANSOPRAZOLE [Concomitant]
     Indication: GASTRIC ULCER
  14. ALENDRONATE SODIUM [Concomitant]
     Indication: OSTEOPOROSIS PROPHYLAXIS
     Dates: start: 20100701, end: 20100921

REACTIONS (1)
  - THROMBOCYTOPENIA [None]
